FAERS Safety Report 8401554-0 (Version None)
Quarter: 2012Q2

REPORT INFORMATION
  Report Type: 
  Country: None (occurrence: None)
  Receive Date: 20120601
  Receipt Date: 20120522
  Transmission Date: 20120825
  Serious: Yes (Hospitalization, Other)
  Sender: FDA-Public Use
  Company Number: CA-ABBOTT-12P-028-0933536-00

PATIENT
  Sex: Female

DRUGS (2)
  1. HUMIRA [Suspect]
     Indication: INTESTINAL FISTULA
  2. HUMIRA [Suspect]
     Indication: CROHN'S DISEASE
     Route: 058
     Dates: start: 20120110, end: 20120418

REACTIONS (5)
  - CROHN'S DISEASE [None]
  - ASCITES [None]
  - GASTROINTESTINAL CARCINOMA [None]
  - WAIST CIRCUMFERENCE INCREASED [None]
  - HEPATIC NEOPLASM MALIGNANT [None]
